FAERS Safety Report 13879615 (Version 1)
Quarter: 2017Q3

REPORT INFORMATION
  Report Type: Spontaneous
  Country: US (occurrence: US)
  Receive Date: 20170814
  Receipt Date: 20170814
  Transmission Date: 20171127
  Serious: Yes (Hospitalization, Disabling)
  Sender: FDA-Public Use
  Company Number: None

PATIENT
  Age: 60 Year
  Sex: Male
  Weight: 67.5 kg

DRUGS (4)
  1. BABY ASPIRIN [Concomitant]
     Active Substance: ASPIRIN
  2. EFFIENT [Suspect]
     Active Substance: PRASUGREL HYDROCHLORIDE
     Indication: CORONARY ARTERIAL STENT INSERTION
     Dosage: ?          QUANTITY:1 TABLET(S);?
     Route: 048
  3. SIMVASTATIN. [Concomitant]
     Active Substance: SIMVASTATIN
  4. LOPRESSOR [Concomitant]
     Active Substance: METOPROLOL TARTRATE

REACTIONS (15)
  - Confusional state [None]
  - Gait disturbance [None]
  - Mood swings [None]
  - Dizziness [None]
  - Hallucination [None]
  - Wernicke^s encephalopathy [None]
  - Vision blurred [None]
  - Nervous system disorder [None]
  - Hemiparesis [None]
  - Feeling abnormal [None]
  - Flight of ideas [None]
  - Hypersomnia [None]
  - Fall [None]
  - Dysarthria [None]
  - Disturbance in attention [None]

NARRATIVE: CASE EVENT DATE: 20160801
